FAERS Safety Report 11317143 (Version 1)
Quarter: 2015Q3

REPORT INFORMATION
  Report Type: Spontaneous
  Country: FR (occurrence: FR)
  Receive Date: 20150728
  Receipt Date: 20150728
  Transmission Date: 20151125
  Serious: Yes (Life-Threatening)
  Sender: FDA-Public Use
  Company Number: FR-PFIZER INC-2015245979

PATIENT
  Age: 76 Year
  Sex: Male

DRUGS (8)
  1. CRESTOR [Concomitant]
     Active Substance: ROSUVASTATIN CALCIUM
     Dosage: 1 DF, DAILY
  2. KENZEN [Concomitant]
     Active Substance: CANDESARTAN
     Dosage: 1 DF, DAILY
  3. LYRICA [Suspect]
     Active Substance: PREGABALIN
     Indication: PAIN
     Dosage: 50 MG, DAILY
     Route: 048
     Dates: start: 20150608
  4. AVODART [Concomitant]
     Active Substance: DUTASTERIDE
     Dosage: 1 DF, DAILY
  5. SERESTA [Suspect]
     Active Substance: OXAZEPAM
     Indication: DEPRESSIVE SYMPTOM
     Dosage: 50 MG, DAILY
     Route: 048
     Dates: start: 20150703
  6. PIASCLEDINE [Concomitant]
     Active Substance: AVOCADO OIL\SOYBEAN OIL
     Dosage: 1 DF, DAILY
  7. MECIR [Concomitant]
     Active Substance: TAMSULOSIN HYDROCHLORIDE
     Dosage: 1 DF, DAILY
  8. LYRICA [Suspect]
     Active Substance: PREGABALIN
     Dosage: 75 MG, DAILY
     Route: 048
     Dates: start: 20150626, end: 20150703

REACTIONS (4)
  - Depressive symptom [Recovering/Resolving]
  - Vertigo [Unknown]
  - Suicide attempt [Recovered/Resolved]
  - Suicide attempt [Recovered/Resolved]

NARRATIVE: CASE EVENT DATE: 20150608
